FAERS Safety Report 12337311 (Version 2)
Quarter: 2019Q3

REPORT INFORMATION
  Report Type: Spontaneous
  Country: US (occurrence: US)
  Receive Date: 20160505
  Receipt Date: 20190726
  Transmission Date: 20191004
  Serious: Yes (Death, Hospitalization, Other)
  Sender: FDA-Public Use
  Company Number: US-009507513-1605USA002227

PATIENT
  Sex: Female
  Weight: 88.44 kg

DRUGS (8)
  1. ASPIRIN. [Concomitant]
     Active Substance: ASPIRIN
     Dosage: 1 TABLET, QD
     Route: 048
  2. VITAMINS (UNSPECIFIED) [Concomitant]
     Active Substance: VITAMINS
     Dosage: UNK, QD
     Route: 048
  3. JANUVIA [Suspect]
     Active Substance: SITAGLIPTIN PHOSPHATE
     Dosage: 50 MILLIGRAM, QD
     Route: 048
     Dates: start: 20140110
  4. VOLTAREN [Concomitant]
     Active Substance: DICLOFENAC SODIUM
     Dosage: 4 GRAM, QID
  5. FLEXERIL [Concomitant]
     Active Substance: CYCLOBENZAPRINE HYDROCHLORIDE
     Dosage: 1 TABLET, TID
  6. SIMVASTATIN. [Concomitant]
     Active Substance: SIMVASTATIN
     Dosage: 1 TABLET, IN THE EVENING, ONCE A DAY
     Route: 048
  7. GLIMEPIRIDE. [Concomitant]
     Active Substance: GLIMEPIRIDE
     Dosage: 2 GRAM, BID
  8. JANUVIA [Suspect]
     Active Substance: SITAGLIPTIN PHOSPHATE
     Dosage: 100 MILLIGRAM, QD
     Route: 048
     Dates: start: 20140207, end: 201408

REACTIONS (8)
  - Cardio-respiratory arrest [Fatal]
  - Hepatic mass [Unknown]
  - Lymphadenopathy [Unknown]
  - Gastrooesophageal reflux disease [Fatal]
  - Metastases to liver [Unknown]
  - Pancreatic carcinoma [Fatal]
  - Disease progression [Fatal]
  - Osteoarthritis [Fatal]

NARRATIVE: CASE EVENT DATE: 20140401
